FAERS Safety Report 7314179-5 (Version None)
Quarter: 2011Q1

REPORT INFORMATION
  Report Type: 
  Country: None (occurrence: None)
  Receive Date: 20110225
  Receipt Date: 20100709
  Transmission Date: 20110831
  Serious: No
  Sender: FDA-Public Use
  Company Number: US-MYLANLABS-2010S1009502

PATIENT
  Age: 16 Year
  Sex: Male
  Weight: 72.58 kg

DRUGS (1)
  1. AMNESTEEM [Suspect]
     Dates: start: 20100226, end: 20100524

REACTIONS (4)
  - MOOD DISORDER DUE TO A GENERAL MEDICAL CONDITION [None]
  - EPISTAXIS [None]
  - FEELING ABNORMAL [None]
  - DRY SKIN [None]
